FAERS Safety Report 18790720 (Version 3)
Quarter: 2021Q3

REPORT INFORMATION
  Report Type: Spontaneous
  Country: US (occurrence: US)
  Receive Date: 20210126
  Receipt Date: 20210812
  Transmission Date: 20211014
  Serious: No
  Sender: FDA-Public Use
  Company Number: US-PFIZER INC-2015038915

PATIENT
  Age: 69 Year
  Sex: Male

DRUGS (11)
  1. OXYCODONE HYDROCHLORIDE. [Concomitant]
     Active Substance: OXYCODONE HYDROCHLORIDE
     Dosage: 15 MG, 3X/DAY, FOR 30 DAYS
     Route: 048
     Dates: start: 20150401
  2. LYRICA [Suspect]
     Active Substance: PREGABALIN
     Indication: PAIN
     Dosage: 150 MG, 2X/DAY, FOR 90 DAYS
     Route: 048
     Dates: start: 20150121
  3. LITHIUM. [Concomitant]
     Active Substance: LITHIUM
     Indication: AFFECTIVE DISORDER
     Dosage: 450 MG, 3X/DAY
     Route: 048
     Dates: start: 20141229
  4. LITHIUM. [Concomitant]
     Active Substance: LITHIUM
     Dosage: 450 MG, 2X/DAY
     Route: 048
  5. KETOCONAZOLE. [Concomitant]
     Active Substance: KETOCONAZOLE
     Dosage: UNK, AS NEEDED,(APPLY TO FACIAL AREAS DOSAGE: 1 CREAM (EXTERNAL) USE TWICE DAILY AS NEEDED)
     Dates: start: 20121218
  6. TRIAMCINOLONE ACETONIDE. [Concomitant]
     Active Substance: TRIAMCINOLONE ACETONIDE
     Dosage: 0.1 %, UNK
  7. DIAZEPAM. [Concomitant]
     Active Substance: DIAZEPAM
     Dosage: 5 MG, UNK
  8. LYRICA [Suspect]
     Active Substance: PREGABALIN
     Indication: NEUROPATHY PERIPHERAL
  9. CARVEDILOL. [Concomitant]
     Active Substance: CARVEDILOL
     Dosage: 3.125 MG, UNK
  10. DOVONEX [Concomitant]
     Active Substance: CALCIPOTRIENE
     Dosage: UNK, 2X/DAY, (1 (EXTERNAL) TWO TIMES DAILY)
  11. DIAZEPAM. [Concomitant]
     Active Substance: DIAZEPAM
     Dosage: 10 MG, 3X/DAY,FOR 30 DAYS
     Route: 048
     Dates: start: 20150331

REACTIONS (1)
  - Withdrawal syndrome [Unknown]
